FAERS Safety Report 10465109 (Version 1)
Quarter: 2014Q3

REPORT INFORMATION
  Report Type: Spontaneous
  Country: PL (occurrence: PL)
  Receive Date: 20140919
  Receipt Date: 20140919
  Transmission Date: 20150326
  Serious: Yes (Other)
  Sender: FDA-Public Use
  Company Number: PL-MYLANLABS-2014M1004730

PATIENT

DRUGS (7)
  1. ATROPINE [Concomitant]
     Active Substance: ATROPINE
     Indication: INDUCTION OF ANAESTHESIA
     Dosage: 0.4MG
     Route: 042
  2. PROPOFOL. [Suspect]
     Active Substance: PROPOFOL
     Indication: INDUCTION OF ANAESTHESIA
     Dosage: 100MG
     Route: 042
  3. SEVOFLURANE. [Suspect]
     Active Substance: SEVOFLURANE
     Indication: MAINTENANCE OF ANAESTHESIA
     Dosage: 2 VOLUME%
     Route: 042
  4. MIDAZOLAM [Concomitant]
     Active Substance: MIDAZOLAM\MIDAZOLAM HYDROCHLORIDE
     Dosage: 15MG
     Route: 048
  5. FENTANYL. [Suspect]
     Active Substance: FENTANYL
     Indication: INDUCTION OF ANAESTHESIA
     Dosage: 0.1MG
     Route: 042
  6. LACTATED RINGERS [Concomitant]
     Active Substance: CALCIUM CHLORIDE\POTASSIUM CHLORIDE\SODIUM CHLORIDE\SODIUM LACTATE
     Dosage: 500 ML AT A MODERATE RATE
     Route: 065
  7. ATRACURIUM BESILATE [Suspect]
     Active Substance: ATRACURIUM BESYLATE
     Indication: INDUCTION OF ANAESTHESIA
     Dosage: 30MG
     Route: 042

REACTIONS (2)
  - Hypotonia [Recovered/Resolved]
  - Shock [Recovered/Resolved]
